FAERS Safety Report 7959398-X (Version None)
Quarter: 2011Q4

REPORT INFORMATION
  Report Type: 
  Country: None (occurrence: None)
  Receive Date: 20111206
  Receipt Date: 20111117
  Transmission Date: 20120403
  Serious: No
  Sender: FDA-Public Use
  Company Number: US-ROXANE LABORATORIES, INC.-2011-RO-01522RO

PATIENT
  Sex: Female

DRUGS (1)
  1. BUTORPHANOL TARATRATE [Suspect]
     Dates: start: 20111014

REACTIONS (2)
  - PRODUCT ODOUR ABNORMAL [None]
  - PRODUCT CONTAINER SEAL ISSUE [None]
